FAERS Safety Report 6999014-7 (Version None)
Quarter: 2010Q3

REPORT INFORMATION
  Report Type: 
  Country: None (occurrence: None)
  Receive Date: 20100902
  Receipt Date: 20100408
  Transmission Date: 20110219
  Serious: Yes (Hospitalization, Other)
  Sender: FDA-Public Use
  Company Number: 230844USA

PATIENT
  Age: 53 Year
  Sex: Female

DRUGS (4)
  1. LISINOPRIL AND HYDROCHLOROTHIAZIDE [Suspect]
     Indication: HYPERTENSION
     Dosage: 10/12.5 GM (1 IN 1 D), ORAL
     Route: 048
     Dates: start: 20090101, end: 20100301
  2. CONJUGATED ESTROGENS [Concomitant]
  3. PANTOPRAZOLE [Concomitant]
  4. SERTRALINE HYDROCHLORIDE [Concomitant]

REACTIONS (2)
  - PHARYNGEAL OEDEMA [None]
  - SWOLLEN TONGUE [None]
